FAERS Safety Report 13090563 (Version 1)
Quarter: 2017Q1

REPORT INFORMATION
  Report Type: Report from Study
  Country: US (occurrence: US)
  Receive Date: 20170105
  Receipt Date: 20170105
  Transmission Date: 20170428
  Serious: Yes (Other)
  Sender: FDA-Public Use
  Company Number: US-GILEAD-2016-0243724

PATIENT
  Age: 93 Year
  Sex: Male

DRUGS (1)
  1. IDELALISIB [Suspect]
     Active Substance: IDELALISIB
     Indication: B-CELL LYMPHOMA
     Dosage: 150 MG, BID
     Route: 048
     Dates: start: 20161029

REACTIONS (9)
  - Dizziness [Unknown]
  - Feeling abnormal [Unknown]
  - Joint swelling [Unknown]
  - Penile swelling [Unknown]
  - Arthritis [Unknown]
  - Testicular swelling [Unknown]
  - Disease progression [Unknown]
  - Constipation [Unknown]
  - Vision blurred [Unknown]
